FAERS Safety Report 11327148 (Version 1)
Quarter: 2015Q3

REPORT INFORMATION
  Report Type: Spontaneous
  Country: CH (occurrence: CH)
  Receive Date: 20150731
  Receipt Date: 20150731
  Transmission Date: 20151125
  Serious: Yes (Hospitalization, Congenital Anomaly)
  Sender: FDA-Public Use
  Company Number: CH-RECKITT BENCKISER PHARMACEUTICAL, INC-RB-081760-2015

PATIENT
  Age: 0 Year
  Sex: Male
  Weight: 2.86 kg

DRUGS (2)
  1. TEMESTA                            /00273201/ [Suspect]
     Active Substance: LORAZEPAM
     Indication: ENDOMETRIOSIS
     Dosage: 2.5 MG, BID
     Route: 064
     Dates: start: 20131010, end: 201401
  2. BUPRENORPHINE HYDROCHLORIDE. [Suspect]
     Active Substance: BUPRENORPHINE HYDROCHLORIDE
     Indication: ENDOMETRIOSIS
     Dosage: 0.8 MG, BID
     Route: 064
     Dates: start: 20131010, end: 201401

REACTIONS (2)
  - Diaphragmatic hernia [Unknown]
  - Foetal exposure during pregnancy [Recovered/Resolved]

NARRATIVE: CASE EVENT DATE: 20131010
